FAERS Safety Report 23388461 (Version 5)
Quarter: 2024Q2

REPORT INFORMATION
  Report Type: Spontaneous
  Country: US (occurrence: US)
  Receive Date: 20240110
  Receipt Date: 20240401
  Transmission Date: 20240716
  Serious: Yes (Other)
  Sender: FDA-Public Use
  Company Number: US-BAYER-2024A002731

PATIENT
  Age: 69 Year
  Sex: Female

DRUGS (11)
  1. JIVI [Suspect]
     Active Substance: DAMOCTOCOG ALFA PEGOL
     Indication: Factor VIII deficiency
     Dosage: 500 IU, PRN (EVERY 5 DAYS AND EVERY 12 TO 24 HOURS)
     Route: 042
     Dates: start: 202301
  2. JIVI [Suspect]
     Active Substance: DAMOCTOCOG ALFA PEGOL
     Indication: Factor VIII deficiency
     Dosage: 500 IU, PRN (EVERY 5 DAYS AND EVERY 12 TO 24 HOURS)
     Route: 042
     Dates: start: 202301
  3. JIVI [Suspect]
     Active Substance: DAMOCTOCOG ALFA PEGOL
     Indication: Factor VIII deficiency
     Dosage: 500 IU, PRN (EVERY 5 DAYS AND EVERY 12 TO 24 HOURS)
     Route: 042
     Dates: start: 202301
  4. JIVI [Suspect]
     Active Substance: DAMOCTOCOG ALFA PEGOL
     Indication: Factor VIII deficiency
     Dosage: 500 IU, PRN (EVERY 5 DAYS AND EVERY 12 TO 24 HOURS)
     Route: 042
     Dates: start: 202301
  5. JIVI [Suspect]
     Active Substance: DAMOCTOCOG ALFA PEGOL
     Indication: Factor VIII deficiency
     Dosage: 4000 IU, PRN (EVERY 5 DAYS AND EVERY 12 TO 24 HOURS )
     Route: 042
     Dates: start: 202301
  6. JIVI [Suspect]
     Active Substance: DAMOCTOCOG ALFA PEGOL
     Indication: Factor VIII deficiency
     Dosage: 4500 IU, PRN  PRN (EVERY 5 DAYS AND EVERY 12 TO 24 HOURS )
  7. JIVI [Suspect]
     Active Substance: DAMOCTOCOG ALFA PEGOL
     Indication: Factor VIII deficiency
     Dosage: 3000 IU, PRN
     Route: 042
     Dates: start: 202301
  8. JIVI [Suspect]
     Active Substance: DAMOCTOCOG ALFA PEGOL
     Indication: Factor VIII deficiency
     Dosage: 4500 IU ,  EVERY 5 DAYS AND EVERY 12 TO 24 HOURS
     Route: 042
  9. JIVI [Suspect]
     Active Substance: DAMOCTOCOG ALFA PEGOL
     Indication: Factor VIII deficiency
     Dosage: 4500 IU
     Route: 042
     Dates: start: 20220303
  10. JIVI [Suspect]
     Active Substance: DAMOCTOCOG ALFA PEGOL
     Indication: Factor VIII deficiency
     Dosage: 1000 IU, PRN
     Route: 042
     Dates: start: 202301
  11. JIVI [Suspect]
     Active Substance: DAMOCTOCOG ALFA PEGOL
     Indication: Factor VIII deficiency
     Dosage: 4500 IU
     Route: 042
     Dates: start: 20220303

REACTIONS (6)
  - Haemorrhage [Recovered/Resolved]
  - Haemorrhage [None]
  - Haemorrhage [None]
  - Haemorrhage [None]
  - Haemorrhage [None]
  - Haemorrhage [Recovered/Resolved]

NARRATIVE: CASE EVENT DATE: 20240116
